FAERS Safety Report 6613487-0 (Version None)
Quarter: 2010Q1

REPORT INFORMATION
  Report Type: 
  Country: None (occurrence: None)
  Receive Date: 20100304
  Receipt Date: 20100224
  Transmission Date: 20100710
  Serious: Yes (Other)
  Sender: FDA-Public Use
  Company Number: US-JNJFOC-20060906243

PATIENT
  Sex: Female

DRUGS (5)
  1. RISPERDAL [Suspect]
     Indication: BIPOLAR DISORDER
     Route: 065
  2. ZOLOFT [Suspect]
     Indication: AFFECTIVE DISORDER
     Route: 065
  3. GABAPENTIN [Suspect]
     Indication: AFFECTIVE DISORDER
     Route: 065
  4. METFORMIN HYDROCHLORIDE [Suspect]
     Indication: DIABETES MELLITUS
     Route: 065
  5. ABILIFY [Suspect]
     Indication: DRUG USE FOR UNKNOWN INDICATION
     Route: 065

REACTIONS (9)
  - ABDOMINAL DISCOMFORT [None]
  - NAUSEA [None]
  - NIGHT SWEATS [None]
  - OVERDOSE [None]
  - SUICIDE ATTEMPT [None]
  - TARDIVE DYSKINESIA [None]
  - TYPE 2 DIABETES MELLITUS [None]
  - VOMITING [None]
  - WEIGHT INCREASED [None]
